FAERS Safety Report 26212191 (Version 1)
Quarter: 2025Q4

REPORT INFORMATION
  Report Type: Spontaneous
  Country: EU (occurrence: EU)
  Receive Date: 20251230
  Receipt Date: 20251230
  Transmission Date: 20260117
  Serious: Yes (Hospitalization)
  Sender: BAXTER
  Company Number: EU-JNJFOC-20111204097

PATIENT
  Age: 50 Year
  Sex: Female

DRUGS (13)
  1. DOXORUBICIN [Suspect]
     Active Substance: DOXORUBICIN
     Indication: Breast cancer female
     Dosage: 73 MG, 1 DAY, DOSAGE FORM: LIPOSOME INJECTION
     Route: 042
     Dates: start: 20110718, end: 20110922
  2. DOXORUBICIN [Suspect]
     Active Substance: DOXORUBICIN
     Dosage: 73 MG, 1 DAY, DOSAGE FORM: LIPOSOME INJECTION
     Route: 042
     Dates: start: 20111007
  3. CYCLOPHOSPHAMIDE [Suspect]
     Active Substance: CYCLOPHOSPHAMIDE
     Indication: Breast cancer female
     Dosage: 780 MG, 1 DAY, DOSAGE FORM: UNSPECIFIED
     Route: 042
     Dates: start: 20110718, end: 20110922
  4. CYCLOPHOSPHAMIDE [Suspect]
     Active Substance: CYCLOPHOSPHAMIDE
     Dosage: 780 MG, QD; DOSAGE FORM: UNSPECIFIED
     Route: 042
     Dates: start: 20111007
  5. ONDANSETRON [Suspect]
     Active Substance: ONDANSETRON
     Dosage: DOSAGE FORM: UNSPECIFIED
     Route: 065
  6. NEULASTA [Suspect]
     Active Substance: PEGFILGRASTIM
     Indication: Prophylaxis
     Dosage: DOSAGE FORM: UNSPECIFIED
     Route: 065
     Dates: start: 20111007
  7. DOCETAXEL [Suspect]
     Active Substance: DOCETAXEL
     Indication: Breast cancer female
     Dosage: 120 MG,UNK
     Route: 042
     Dates: start: 20110718, end: 20110922
  8. DOCETAXEL [Suspect]
     Active Substance: DOCETAXEL
     Dosage: 120 MG, DOSAGE FORM: UNSPECIFIED
     Route: 042
     Dates: start: 20111007
  9. ACETAMINOPHEN [Concomitant]
     Active Substance: ACETAMINOPHEN
     Dosage: 3000 MG, 1 DAY, (1000 MG, TID) (START DATE: JUL-2011)
     Route: 065
     Dates: start: 201107
  10. GRANISETRON [Concomitant]
     Active Substance: GRANISETRON
     Dosage: DOSAGE FORM: UNSPECIFIED
     Route: 065
  11. DEXAMETHASONE [Concomitant]
     Active Substance: DEXAMETHASONE
     Dosage: UNK, DOSAGE FORM: UNSPECIFIED
     Route: 065
  12. LEVOTHYROXINE [Concomitant]
     Active Substance: LEVOTHYROXINE
     Dosage: 0.03 MG, 0.025 MG, UNK
     Route: 065
  13. METOCLOPRAMIDE [Concomitant]
     Active Substance: METOCLOPRAMIDE
     Dosage: 10 MG, DOSAGE FORM: UNSPECIFIED (START DATE: JUL-2011)
     Route: 065
     Dates: start: 201107

REACTIONS (1)
  - Pyrexia [Recovered/Resolved]

NARRATIVE: CASE EVENT DATE: 20111007
